FAERS Safety Report 16398656 (Version 2)
Quarter: 2019Q2

REPORT INFORMATION
  Report Type: Spontaneous
  Country: US (occurrence: US)
  Receive Date: 20190606
  Receipt Date: 20190611
  Transmission Date: 20190711
  Serious: Yes (Other)
  Sender: FDA-Public Use
  Company Number: US-PFIZER INC-2019234142

PATIENT
  Age: 66 Year
  Sex: Female
  Weight: 72.56 kg

DRUGS (3)
  1. PRISTIQ EXTENDED-RELEASE [Suspect]
     Active Substance: DESVENLAFAXINE SUCCINATE
     Indication: DEPRESSION
     Dosage: 50 MG, 1X/DAY
     Dates: start: 20190527
  2. PROZAC [Concomitant]
     Active Substance: FLUOXETINE HYDROCHLORIDE
     Dosage: 10 MG, UNK
  3. PROZAC [Concomitant]
     Active Substance: FLUOXETINE HYDROCHLORIDE
     Dosage: 20 MG, UNK

REACTIONS (8)
  - Blood pressure increased [Not Recovered/Not Resolved]
  - Micturition disorder [Unknown]
  - Fatigue [Unknown]
  - Ear congestion [Not Recovered/Not Resolved]
  - Nausea [Unknown]
  - Headache [Not Recovered/Not Resolved]
  - Feeling abnormal [Unknown]
  - Muscular weakness [Unknown]

NARRATIVE: CASE EVENT DATE: 201905
